FAERS Safety Report 22195260 (Version 1)
Quarter: 2023Q2

REPORT INFORMATION
  Report Type: Spontaneous
  Country: US (occurrence: US)
  Receive Date: 20230411
  Receipt Date: 20230411
  Transmission Date: 20230721
  Serious: No
  Sender: FDA-Public Use
  Company Number: US-TEVA-2023-US-2873905

PATIENT
  Sex: Male

DRUGS (1)
  1. TESTOSTERONE [Suspect]
     Active Substance: TESTOSTERONE
     Indication: Product used for unknown indication
     Dosage: 100MG/ML 10ML VIAL AND 200MG/ML 1ML VIAL BY 2Q2023 AND 100MG/ML 1ML AVAILABLE BY 3Q2023
     Route: 065

REACTIONS (1)
  - Drug ineffective [Unknown]
